FAERS Safety Report 24040938 (Version 1)
Quarter: 2024Q3

REPORT INFORMATION
  Report Type: Spontaneous
  Country: US (occurrence: None)
  Receive Date: 20240701
  Receipt Date: 20240701
  Transmission Date: 20241017
  Serious: Yes (Other)
  Sender: Public
  Company Number: None

PATIENT
  Sex: 0

DRUGS (1)
  1. EPINEPHRINE\LIDOCAINE [Suspect]
     Active Substance: EPINEPHRINE\LIDOCAINE
     Dosage: 20 ML AS NEEDED SUBCUTANEOUS
     Route: 058

REACTIONS (2)
  - Injection site reaction [None]
  - Bullous haemorrhagic dermatosis [None]
